FAERS Safety Report 11876681 (Version 1)
Quarter: 2015Q4

REPORT INFORMATION
  Report Type: Other
  Country: CA (occurrence: CA)
  Receive Date: 20151229
  Receipt Date: 20151229
  Transmission Date: 20160305
  Serious: Yes (Disabling, Other)
  Sender: FDA-Public Use
  Company Number: CA-CONCORDIA PHARMACEUTICALS INC.-PIN-2015-00064

PATIENT

DRUGS (1)
  1. PHOTOFRIN [Suspect]
     Active Substance: PORFIMER SODIUM
     Indication: SQUAMOUS CELL CARCINOMA
     Dosage: 1-2 MG/KG

REACTIONS (3)
  - Infection [Unknown]
  - Peripheral swelling [Unknown]
  - Amputation [Unknown]
